FAERS Safety Report 12087779 (Version 1)
Quarter: 2016Q1

REPORT INFORMATION
  Report Type: Spontaneous
  Country: US (occurrence: US)
  Receive Date: 20160217
  Receipt Date: 20160217
  Transmission Date: 20160526
  Serious: No
  Sender: FDA-Public Use
  Company Number: US-ALLERGAN-1519911US

PATIENT
  Age: 86 Year
  Sex: Female
  Weight: 71.66 kg

DRUGS (13)
  1. CLEAR EYES                         /00419602/ [Concomitant]
     Indication: OCULAR HYPERAEMIA
  2. SYSTANE (HYPROMELLOSE 2910 (4000 MPA.S)) [Concomitant]
     Active Substance: HYPROMELLOSE 2910 (4000 MPA.S)
     Indication: DRY EYE
  3. SIMVASTATIN. [Concomitant]
     Active Substance: SIMVASTATIN
     Indication: BLOOD CHOLESTEROL INCREASED
  4. CLEAR EYES                         /00419602/ [Concomitant]
     Indication: DRY EYE
  5. FLUOROMETHOLONE, 0.1% [Concomitant]
     Active Substance: FLUOROMETHOLONE
     Indication: DRY EYE
  6. GENTEAL GEL SEVERE [Concomitant]
     Indication: DRY EYE
  7. OMEPRAZOLE. [Concomitant]
     Active Substance: OMEPRAZOLE
     Indication: GASTRIC ULCER HAEMORRHAGE
  8. RESTASIS [Suspect]
     Active Substance: CYCLOSPORINE
     Indication: DRY EYE
     Dosage: 2 GTT, BID
     Route: 047
     Dates: start: 201504
  9. GENTEAL GEL SEVERE [Concomitant]
     Indication: OCULAR HYPERAEMIA
  10. WATER PILL [Concomitant]
     Active Substance: UNSPECIFIED INGREDIENT
     Indication: HYPERTENSION
  11. SYSTANE (HYPROMELLOSE 2910 (4000 MPA.S)) [Concomitant]
     Active Substance: HYPROMELLOSE 2910 (4000 MPA.S)
     Indication: OCULAR HYPERAEMIA
  12. FLUOROMETHOLONE, 0.1% [Concomitant]
     Active Substance: FLUOROMETHOLONE
     Indication: OCULAR HYPERAEMIA
  13. LOSARTAN. [Concomitant]
     Active Substance: LOSARTAN
     Indication: HYPERTENSION

REACTIONS (2)
  - Incorrect product storage [Unknown]
  - Ocular hyperaemia [Not Recovered/Not Resolved]
